FAERS Safety Report 7602109-8 (Version None)
Quarter: 2011Q3

REPORT INFORMATION
  Report Type: 
  Country: None (occurrence: None)
  Receive Date: 20110711
  Receipt Date: 20110711
  Transmission Date: 20111222
  Serious: Yes (Other)
  Sender: FDA-Public Use
  Company Number: None

PATIENT
  Age: 20 Year
  Sex: Male
  Weight: 63.502 kg

DRUGS (1)
  1. PROPECIA [Suspect]
     Indication: ANDROGENETIC ALOPECIA
     Dosage: 1 TABLET
     Route: 048
     Dates: start: 20020101, end: 20080101

REACTIONS (7)
  - DISTURBANCE IN ATTENTION [None]
  - ASTHENIA [None]
  - DAYDREAMING [None]
  - MEMORY IMPAIRMENT [None]
  - SOCIAL AVOIDANT BEHAVIOUR [None]
  - ERECTILE DYSFUNCTION [None]
  - SPEECH DISORDER [None]
